FAERS Safety Report 19910458 (Version 2)
Quarter: 2022Q1

REPORT INFORMATION
  Report Type: Spontaneous
  Country: US (occurrence: US)
  Receive Date: 20211004
  Receipt Date: 20220102
  Transmission Date: 20220424
  Serious: No
  Sender: FDA-Public Use
  Company Number: US-BIOVITRUM-2021US2139

PATIENT
  Age: 36 Year
  Sex: Female

DRUGS (2)
  1. KINERET [Suspect]
     Active Substance: ANAKINRA
     Indication: Still^s disease
     Route: 058
     Dates: start: 20210216
  2. KINERET [Suspect]
     Active Substance: ANAKINRA
     Route: 058
     Dates: start: 20210223

REACTIONS (14)
  - Restless legs syndrome [Unknown]
  - Neurological symptom [Unknown]
  - Facial pain [Recovered/Resolved]
  - Pain in extremity [Recovered/Resolved]
  - Bedridden [Unknown]
  - Adverse reaction [Unknown]
  - Weight decreased [Unknown]
  - Psoriasis [Unknown]
  - Acne [Unknown]
  - Injection site pain [Unknown]
  - Product storage error [Unknown]
  - Product administration error [Unknown]
  - Product dose omission issue [Unknown]
  - Off label use [Unknown]

NARRATIVE: CASE EVENT DATE: 20210216
